FAERS Safety Report 15338518 (Version 1)
Quarter: 2018Q3

REPORT INFORMATION
  Report Type: Spontaneous
  Country: US (occurrence: US)
  Receive Date: 20180831
  Receipt Date: 20180831
  Transmission Date: 20181010
  Serious: No
  Sender: FDA-Public Use
  Company Number: US-009507513-1808USA002739

PATIENT
  Sex: Female

DRUGS (1)
  1. NEXPLANON [Suspect]
     Active Substance: ETONOGESTREL
     Dosage: 1 DF, UNK
     Route: 059
     Dates: start: 20180420

REACTIONS (4)
  - Complication of device removal [Unknown]
  - Complication associated with device [Unknown]
  - Device difficult to use [Unknown]
  - Complication of device removal [Unknown]

NARRATIVE: CASE EVENT DATE: 201806
